FAERS Safety Report 8028632-2 (Version None)
Quarter: 2012Q1

REPORT INFORMATION
  Report Type: 
  Country: None (occurrence: None)
  Receive Date: 20120106
  Receipt Date: 20111212
  Transmission Date: 20120608
  Serious: No
  Sender: FDA-Public Use
  Company Number: CA-BAYER-2011-114476

PATIENT
  Sex: Female

DRUGS (1)
  1. MIRENA [Suspect]
     Dosage: 20 MCG/24HR, CONT
     Route: 015
     Dates: start: 20110501, end: 20111129

REACTIONS (11)
  - NERVOUSNESS [None]
  - DARK CIRCLES UNDER EYES [None]
  - HAEMOGLOBIN INCREASED [None]
  - BLADDER DISORDER [None]
  - CYST [None]
  - ALOPECIA [None]
  - DIZZINESS [None]
  - SERUM FERRITIN INCREASED [None]
  - ADNEXA UTERI PAIN [None]
  - NAUSEA [None]
  - ABDOMINAL PAIN LOWER [None]
